FAERS Safety Report 9723727 (Version 4)
Quarter: 2014Q1

REPORT INFORMATION
  Report Type: Spontaneous
  Country: US (occurrence: US)
  Receive Date: 20131202
  Receipt Date: 20140121
  Transmission Date: 20141002
  Serious: Yes (Other)
  Sender: FDA-Public Use
  Company Number: US-PFIZER INC-2013325672

PATIENT
  Age: 56 Year
  Sex: Female

DRUGS (10)
  1. LYRICA [Suspect]
     Indication: CERVICAL SPINAL STENOSIS
     Dosage: 50 MG (EVERY MORNING) AND 150 MG (EVERY AFTERNOON AND AT BEDTIME)
  2. TRAMADOL [Concomitant]
     Dosage: 50 MG, UNK
  3. FOSAMAX [Concomitant]
     Dosage: 70 MG, UNK
  4. CORAZ [Concomitant]
     Dosage: 6.25 MG, UNK
  5. AUGMENTIN [Concomitant]
     Dosage: UNK
  6. LEXAPRO [Concomitant]
     Dosage: UNK
  7. HCTZ [Concomitant]
     Dosage: UNK
  8. CALCIUM W/COLECALCIFEROL [Concomitant]
     Dosage: UNK
  9. ABILIFY [Concomitant]
     Dosage: UNK
  10. ARTANE [Concomitant]
     Dosage: UNK

REACTIONS (3)
  - Off label use [Unknown]
  - Spinal disorder [Unknown]
  - Sedation [Unknown]
